FAERS Safety Report 5089314-2 (Version None)
Quarter: 2006Q3

REPORT INFORMATION
  Report Type: 
  Country: None (occurrence: None)
  Receive Date: 20060822
  Receipt Date: 20060807
  Transmission Date: 20061208
  Serious: Yes (Life-Threatening, Other)
  Sender: FDA-Public Use
  Company Number: DEU-2006-0002251

PATIENT
  Age: 58 Year
  Sex: Male
  Weight: 76 kg

DRUGS (3)
  1. OXY CR TAB 10MG (OXY CR TAB 10 MG  (OXYCODONE HYDROCHLORIDE)PROLONGED- [Suspect]
     Indication: PAIN
     Dosage: 10 MG, BID, ORAL
     Route: 048
     Dates: start: 20060223
  2. INSULIN [Concomitant]
  3. METOCLOPRAMIDE [Concomitant]

REACTIONS (3)
  - DIABETES MELLITUS INADEQUATE CONTROL [None]
  - HYPOGLYCAEMIA UNAWARENESS [None]
  - SENSORY DISTURBANCE [None]
